FAERS Safety Report 20772600 (Version 1)
Quarter: 2022Q2

REPORT INFORMATION
  Report Type: Report from Study
  Country: US (occurrence: US)
  Receive Date: 20220502
  Receipt Date: 20220502
  Transmission Date: 20220721
  Serious: Yes (Death, Hospitalization, Other)
  Sender: FDA-Public Use
  Company Number: US-CELGENE-USA-20220304506

PATIENT
  Age: 83 Year
  Sex: Female
  Weight: 53.98 kg

DRUGS (18)
  1. REVLIMID [Suspect]
     Active Substance: LENALIDOMIDE
     Indication: Plasma cell myeloma
     Dosage: 25 MILLIGRAM
     Route: 048
     Dates: start: 20220125
  2. REVLIMID [Suspect]
     Active Substance: LENALIDOMIDE
     Indication: Cervical cord compression
  3. ONDANSETRON IPS [ONDANSETRON] [Concomitant]
  4. PANTOPRAZOLE SODIUM [Concomitant]
     Active Substance: PANTOPRAZOLE SODIUM
  5. COBAMAMIDE [Concomitant]
     Active Substance: COBAMAMIDE
  6. NYSTATIN [Concomitant]
     Active Substance: NYSTATIN
  7. VITAMINS [Concomitant]
     Active Substance: VITAMINS
  8. NIFEDIPINE [Concomitant]
     Active Substance: NIFEDIPINE
  9. LISINOPRIL [Concomitant]
     Active Substance: LISINOPRIL
  10. ACETAMINOPHEN\HYDROCODONE [Concomitant]
     Active Substance: ACETAMINOPHEN\HYDROCODONE
  11. ZOLPIDEM [Concomitant]
     Active Substance: ZOLPIDEM TARTRATE
  12. MEGESTROL ACETATE [Concomitant]
     Active Substance: MEGESTROL ACETATE
  13. ERGOCALCIFEROL [Concomitant]
     Active Substance: ERGOCALCIFEROL
  14. SERTRALINE [Concomitant]
     Active Substance: SERTRALINE HYDROCHLORIDE
  15. ASPIRIN [Concomitant]
     Active Substance: ASPIRIN
  16. XGEVA [Concomitant]
     Active Substance: DENOSUMAB
  17. VELCADE [Concomitant]
     Active Substance: BORTEZOMIB
  18. DEXAMETHASONE [Concomitant]
     Active Substance: DEXAMETHASONE

REACTIONS (3)
  - Fungal infection [Unknown]
  - Drug intolerance [Unknown]
  - Death [Fatal]

NARRATIVE: CASE EVENT DATE: 20220101
